FAERS Safety Report 7069084-9 (Version None)
Quarter: 2010Q4

REPORT INFORMATION
  Report Type: 
  Country: None (occurrence: None)
  Receive Date: 20101028
  Receipt Date: 20101020
  Transmission Date: 20110411
  Serious: Yes (Other)
  Sender: FDA-Public Use
  Company Number: A0443386A

PATIENT
  Age: 68 Year
  Sex: Female

DRUGS (6)
  1. SEREVENT [Suspect]
     Indication: ASTHMA
     Dosage: 2PUFF TWICE PER DAY
     Route: 055
  2. ADVAIR DISKUS 100/50 [Suspect]
     Indication: ASTHMA
     Route: 055
     Dates: start: 20060101, end: 20060101
  3. PRILOSEC [Concomitant]
  4. LOZOL [Concomitant]
  5. VENTOLIN [Concomitant]
     Route: 055
  6. ALBUTEROL [Concomitant]

REACTIONS (5)
  - BRONCHIAL IRRITATION [None]
  - COUGH [None]
  - GENERAL PHYSICAL HEALTH DETERIORATION [None]
  - PNEUMONIA [None]
  - RESPIRATORY TRACT IRRITATION [None]
